FAERS Safety Report 25770167 (Version 1)
Quarter: 2025Q3

REPORT INFORMATION
  Report Type: Report from Study
  Country: US (occurrence: US)
  Receive Date: 20250907
  Receipt Date: 20250907
  Transmission Date: 20251021
  Serious: Yes (Other)
  Sender: JOHNSON AND JOHNSON
  Company Number: US-JNJFOC-20250901656

PATIENT
  Age: 4 Decade
  Sex: Female

DRUGS (5)
  1. SPRAVATO [Suspect]
     Active Substance: ESKETAMINE
     Indication: Depression
     Route: 045
     Dates: start: 20230815, end: 20230817
  2. SPRAVATO [Suspect]
     Active Substance: ESKETAMINE
     Indication: Psychotic disorder
     Route: 045
     Dates: start: 20230822, end: 20231221
  3. SPRAVATO [Suspect]
     Active Substance: ESKETAMINE
     Route: 045
     Dates: start: 20240109, end: 20250814
  4. SPRAVATO [Suspect]
     Active Substance: ESKETAMINE
     Route: 045
     Dates: start: 20250818, end: 20250818
  5. SPRAVATO [Suspect]
     Active Substance: ESKETAMINE
     Route: 045
     Dates: start: 20250825, end: 20250828

REACTIONS (6)
  - Psychotic disorder [Unknown]
  - Suicidal ideation [Recovering/Resolving]
  - Hallucination [Recovering/Resolving]
  - Delusion [Recovering/Resolving]
  - Sleep deficit [Recovered/Resolved]
  - Sexual abuse [Recovering/Resolving]

NARRATIVE: CASE EVENT DATE: 20250101
